FAERS Safety Report 4534838-7 (Version None)
Quarter: 2004Q4

REPORT INFORMATION
  Report Type: 
  Country: None (occurrence: None)
  Receive Date: 20041222
  Receipt Date: 20040421
  Transmission Date: 20050328
  Serious: No
  Sender: FDA-Public Use
  Company Number: US-BRISTOL-MYERS SQUIBB COMPANY-12567814

PATIENT
  Age: 79 Year
  Sex: Male
  Weight: 84 kg

DRUGS (3)
  1. PRAVACHOL [Suspect]
     Indication: ARTERIOSCLEROSIS
     Route: 048
  2. VIAGRA [Concomitant]
  3. ASPIRIN [Concomitant]

REACTIONS (1)
  - WEIGHT DECREASED [None]
